FAERS Safety Report 9828550 (Version 3)
Quarter: 2014Q1

REPORT INFORMATION
  Report Type: Spontaneous
  Country: US (occurrence: US)
  Receive Date: 20140117
  Receipt Date: 20140131
  Transmission Date: 20141002
  Serious: Yes (Disabling, Other)
  Sender: FDA-Public Use
  Company Number: PHHY2014US003209

PATIENT
  Age: 23 Year
  Sex: Male

DRUGS (3)
  1. METHADONE [Suspect]
     Dosage: 30 MG, QD
  2. METHADONE [Suspect]
     Dosage: 90 MG, UNK
  3. NALTREXONE [Suspect]
     Indication: REHABILITATION THERAPY
     Dosage: 50 MG, QD

REACTIONS (6)
  - Deafness neurosensory [Not Recovered/Not Resolved]
  - Respiratory arrest [Unknown]
  - Ear injury [Unknown]
  - Loss of consciousness [Unknown]
  - Substance abuse [Unknown]
  - Overdose [Unknown]
